FAERS Safety Report 5644000-2 (Version None)
Quarter: 2008Q1

REPORT INFORMATION
  Report Type: 
  Country: None (occurrence: None)
  Receive Date: 20080131
  Receipt Date: 20071220
  Transmission Date: 20080703
  Serious: Yes (Hospitalization)
  Sender: FDA-Public Use
  Company Number: 163-21880-07111113

PATIENT
  Age: 38 Year
  Sex: Male

DRUGS (7)
  1. REVLIMID [Suspect]
     Indication: MULTIPLE MYELOMA
     Dosage: 25 MG, 1 IN 1 D, ORAL
     Route: 048
     Dates: start: 20071026
  2. MS CONTIN [Concomitant]
  3. OXYCODONE HCL [Concomitant]
  4. IRON (FE) (IRON) [Concomitant]
  5. ARANESP [Concomitant]
  6. ZOMETA [Concomitant]
  7. CALCIUM (CALCIUM) [Concomitant]

REACTIONS (4)
  - DEEP VEIN THROMBOSIS [None]
  - OEDEMA PERIPHERAL [None]
  - PAIN IN EXTREMITY [None]
  - THROMBOSIS [None]
